FAERS Safety Report 5376504-4 (Version None)
Quarter: 2007Q2

REPORT INFORMATION
  Report Type: 
  Country: None (occurrence: None)
  Receive Date: 20070629
  Receipt Date: 20070628
  Transmission Date: 20071010
  Serious: Yes (Other)
  Sender: FDA-Public Use
  Company Number: 2007S1000130

PATIENT
  Age: 1 Day
  Sex: Male
  Weight: 0.74 kg

DRUGS (2)
  1. NITRIC OXIDE [Suspect]
     Indication: LUNG DISORDER
     Dosage: 5 PPM; CONT; INH
     Route: 055
     Dates: start: 20070625, end: 20070626
  2. NITRIC OXIDE [Suspect]
     Indication: PROPHYLAXIS
     Dosage: 5 PPM; CONT; INH
     Route: 055
     Dates: start: 20070625, end: 20070626

REACTIONS (2)
  - NEONATAL DISORDER [None]
  - PULMONARY HYPERTENSION [None]
